FAERS Safety Report 13160242 (Version 1)
Quarter: 2017Q1

REPORT INFORMATION
  Report Type: Spontaneous
  Country: IT (occurrence: IT)
  Receive Date: 20170127
  Receipt Date: 20170127
  Transmission Date: 20170428
  Serious: Yes (Other)
  Sender: FDA-Public Use
  Company Number: IT-BRISTOL-MYERS SQUIBB COMPANY-BMS-2017-004562

PATIENT
  Age: 73 Year
  Sex: Female
  Weight: 70 kg

DRUGS (1)
  1. OPDIVO [Suspect]
     Active Substance: NIVOLUMAB
     Indication: METASTATIC MALIGNANT MELANOMA
     Dosage: 210 MG, QCYCLE
     Route: 065
     Dates: start: 20160421

REACTIONS (5)
  - Dysphagia [Unknown]
  - Inflammation [Unknown]
  - Diarrhoea [Unknown]
  - Erythema [Unknown]
  - Autoimmune colitis [Unknown]

NARRATIVE: CASE EVENT DATE: 20170116
